FAERS Safety Report 18603383 (Version 17)
Quarter: 2024Q1

REPORT INFORMATION
  Report Type: Spontaneous
  Country: CA (occurrence: CA)
  Receive Date: 20201210
  Receipt Date: 20240306
  Transmission Date: 20240410
  Serious: Yes (Hospitalization, Other)
  Sender: FDA-Public Use
  Company Number: CA-CELLTRION INC.-2019CA028144

PATIENT

DRUGS (26)
  1. INFLECTRA [Suspect]
     Active Substance: INFLIXIMAB-DYYB
     Indication: Crohn^s disease
     Dosage: 5 MG/KG, 0, 2, 6 THEN EVERY 8 WEEKS, (ROUNDED TO NEAREST 100 MG)
     Route: 042
     Dates: start: 20191209
  2. INFLECTRA [Suspect]
     Active Substance: INFLIXIMAB-DYYB
     Dosage: 5 MG/KG, 0, 2, 6 THEN EVERY 8 WEEKS
     Route: 042
     Dates: start: 20191224
  3. INFLECTRA [Suspect]
     Active Substance: INFLIXIMAB-DYYB
     Dosage: 5 MG/KG, 0, 2, 6 THEN EVERY 8 WEEKS
     Route: 042
     Dates: start: 20200508
  4. INFLECTRA [Suspect]
     Active Substance: INFLIXIMAB-DYYB
     Dosage: 5 MG/KG, 0, 2, 6 THEN EVERY 8 WEEKS
     Route: 042
     Dates: start: 20200717
  5. INFLECTRA [Suspect]
     Active Substance: INFLIXIMAB-DYYB
     Dosage: 5 MG/KG, 0, 2, 6 THEN EVERY 8 WEEKS
     Route: 042
     Dates: start: 20201116, end: 20201116
  6. INFLECTRA [Suspect]
     Active Substance: INFLIXIMAB-DYYB
     Dosage: 5 MG/KG, 0, 2, 6 THEN EVERY 8 WEEKS
     Route: 042
     Dates: start: 20210308
  7. INFLECTRA [Suspect]
     Active Substance: INFLIXIMAB-DYYB
     Dosage: 5 MG/KG,0, 2, 6 THEN EVERY 8 WEEKS
     Route: 042
     Dates: start: 20210428
  8. INFLECTRA [Suspect]
     Active Substance: INFLIXIMAB-DYYB
     Dosage: 5 MG/KG, 0, 2, 6 THEN EVERY 8 WEEKS
     Route: 042
     Dates: start: 20210714
  9. INFLECTRA [Suspect]
     Active Substance: INFLIXIMAB-DYYB
     Dosage: 5 MG/KG, 0, 2, 6 THEN EVERY 8 WEEKS
     Route: 042
     Dates: start: 20211012
  10. INFLECTRA [Suspect]
     Active Substance: INFLIXIMAB-DYYB
     Dosage: 5 MG/KG, 0, 2, 6 THEN EVERY 8 WEEKS
     Route: 042
     Dates: start: 20220107
  11. INFLECTRA [Suspect]
     Active Substance: INFLIXIMAB-DYYB
     Dosage: 5 MG/KG,0, 2, 6 THEN EVERY 8 WEEKS
     Route: 042
     Dates: start: 20220304
  12. INFLECTRA [Suspect]
     Active Substance: INFLIXIMAB-DYYB
     Dosage: 5 MG/KG, 0, 2, 6 THEN EVERY 8 WEEKS, (ROUNDED TO NEAREST 100 MG)
     Route: 042
     Dates: start: 20220623
  13. INFLECTRA [Suspect]
     Active Substance: INFLIXIMAB-DYYB
     Dosage: 5 MG/KG, 0, 2, 6 THEN EVERY 8 WEEKS, (ROUNDED TO NEAREST 100 MG)
     Route: 042
     Dates: start: 20220826
  14. INFLECTRA [Suspect]
     Active Substance: INFLIXIMAB-DYYB
     Dosage: 5 MG/KG, 0, 2, 6 THEN EVERY 8 WEEKS, (ROUNDED TO NEAREST 100 MG)
     Route: 042
     Dates: start: 20221021
  15. INFLECTRA [Suspect]
     Active Substance: INFLIXIMAB-DYYB
     Dosage: 600 MG (5 MG/KG), 0, 2, 6 THEN EVERY 8 WEEKS, (ROUNDED TO NEAREST 100 MG)
     Route: 042
     Dates: start: 20230130
  16. INFLECTRA [Suspect]
     Active Substance: INFLIXIMAB-DYYB
     Dosage: 5 MG/KG, AFTER 10 WEEKS (0, 2, 6 THEN EVERY 8 WEEKS, ROUNDED TO NEAREST 100 MG
     Route: 042
     Dates: start: 20230519
  17. INFLECTRA [Suspect]
     Active Substance: INFLIXIMAB-DYYB
     Dosage: 600 MG AFTER 10 WEEKS (SUPPOSED TO RECEIVE EVERY 8 WEEKS)
     Route: 042
     Dates: start: 20230728
  18. INFLECTRA [Suspect]
     Active Substance: INFLIXIMAB-DYYB
     Dosage: 585 MG, 11 WEEKS AND 3 DAYS (SUPPOSED TO RECEIVE EVERY 8 WEEKS)
     Route: 042
     Dates: start: 20231016
  19. INFLECTRA [Suspect]
     Active Substance: INFLIXIMAB-DYYB
     Dosage: 5 MG/KG, 0, 2, 6 THEN EVERY 8 WEEKS, (ROUNDED TO NEAREST 100 MG)
     Route: 042
     Dates: start: 20231212
  20. INFLECTRA [Suspect]
     Active Substance: INFLIXIMAB-DYYB
     Dosage: 5 MG/KG, 0, 2, 6 THEN EVERY 8 WEEKS, (ROUNDED TO NEAREST 100 MG)(585 MG, AFTER 10 WEEKS AND 6 DAYS)
     Route: 042
     Dates: start: 20240226
  21. PERINDOPRIL [Concomitant]
     Active Substance: PERINDOPRIL
     Dosage: 1 DF(DOSAGE IS UNKNOWN)
     Route: 065
  22. CIPROFLOXACIN [Concomitant]
     Active Substance: CIPROFLOXACIN
     Indication: Salmonellosis
     Dosage: 500 MG, 2X/DAY
     Route: 048
     Dates: start: 202011
  23. ELIQUIS [Concomitant]
     Active Substance: APIXABAN
     Indication: Coagulopathy
     Dosage: 5 MG, 2X/DAY
     Route: 048
     Dates: start: 202011
  24. PREVACID [Concomitant]
     Active Substance: LANSOPRAZOLE
     Dosage: 1 DF(DOSAGE IS UNKNOWN)
     Route: 065
  25. RIFAMPIN [Concomitant]
     Active Substance: RIFAMPIN
     Dosage: 1 DF, UNKNOWN FOR 4 MONTHS
     Route: 065
     Dates: start: 201910
  26. SYNTHROID [Concomitant]
     Active Substance: LEVOTHYROXINE SODIUM
     Dosage: 1 DF(DOSAGE IS UNKNOWN)
     Route: 065

REACTIONS (11)
  - Pulmonary embolism [Recovered/Resolved]
  - Salmonella bacteraemia [Recovered/Resolved]
  - Pyrexia [Unknown]
  - Anal fissure [Recovered/Resolved]
  - Infusion site pain [Unknown]
  - Infusion site extravasation [Unknown]
  - Infusion site swelling [Unknown]
  - Gastrointestinal viral infection [Recovered/Resolved]
  - Abdominal distension [Not Recovered/Not Resolved]
  - Incorrect dosage administered [Unknown]
  - Inappropriate schedule of product administration [Unknown]

NARRATIVE: CASE EVENT DATE: 20200101
